FAERS Safety Report 7521139-8 (Version None)
Quarter: 2011Q2

REPORT INFORMATION
  Report Type: 
  Country: None (occurrence: None)
  Receive Date: 20110603
  Receipt Date: 20101207
  Transmission Date: 20111010
  Serious: Yes (Other)
  Sender: FDA-Public Use
  Company Number: BR-BAYER-2010-002405

PATIENT
  Age: 27 Year
  Sex: Female

DRUGS (6)
  1. TOPAMAX [Concomitant]
     Indication: EPILEPSY
  2. GLUCOBAY [Suspect]
     Indication: HYPERINSULINISM
     Dosage: 50 MG, MT
     Route: 048
     Dates: start: 20090101, end: 20101128
  3. DAFORIN [Concomitant]
     Indication: STRESS
     Dosage: 1 DF, QD
     Route: 048
     Dates: start: 20090101
  4. TOPAMAX [Concomitant]
     Indication: DEPRESSION
     Dosage: 1 DF, QD
     Route: 048
     Dates: start: 20090101
  5. DROSPIRENONE AND ETHINYL ESTRADIOL [Concomitant]
     Indication: CONTRACEPTION
     Dosage: 1 DF, QD
     Route: 048
     Dates: start: 20100901
  6. DAFORIN [Concomitant]
     Indication: ANXIETY

REACTIONS (3)
  - DIZZINESS [None]
  - HEADACHE [None]
  - HYPERHIDROSIS [None]
